FAERS Safety Report 10987030 (Version 1)
Quarter: 2015Q2

REPORT INFORMATION
  Report Type: Spontaneous
  Country: US (occurrence: US)
  Receive Date: 20150404
  Receipt Date: 20150404
  Transmission Date: 20150821
  Serious: No
  Sender: FDA-Public Use
  Company Number: US-SA-2015SA021980

PATIENT
  Sex: Female

DRUGS (1)
  1. ALLEGRA-D [Suspect]
     Active Substance: FEXOFENADINE\PSEUDOEPHEDRINE
     Dosage: DOSE: TOOK ONE ALLEGRA- D 24 HOUR TABLET ABOUT 40 MINUTES AFTER EATING A BREAKFAST
     Route: 048

REACTIONS (1)
  - Drug administration error [Unknown]
